FAERS Safety Report 8887097 (Version 1)
Quarter: 2012Q4

REPORT INFORMATION
  Report Type: 
  Country: MX (occurrence: MX)
  Receive Date: 20121105
  Receipt Date: 20121105
  Transmission Date: 20130627
  Serious: Yes (Hospitalization)
  Sender: FDA-Public Use
  Company Number: PHHY2012MX100731

PATIENT
  Sex: Female

DRUGS (2)
  1. ACLASTA [Suspect]
     Indication: OSTEOPOROSIS
     Dosage: 5 mg/ 100 ml, yearly
     Route: 042
     Dates: start: 20100801
  2. CAPTOPRIL [Concomitant]
     Dosage: 25 mg, Q12H

REACTIONS (1)
  - Arthropathy [Recovered/Resolved]
